FAERS Safety Report 7947923-4 (Version None)
Quarter: 2011Q4

REPORT INFORMATION
  Report Type: 
  Country: None (occurrence: None)
  Receive Date: 20111123
  Receipt Date: 20111108
  Transmission Date: 20120403
  Serious: Yes (Other)
  Sender: FDA-Public Use
  Company Number: 2011P1010156

PATIENT
  Age: 56 Year
  Sex: Female
  Weight: 98.8842 kg

DRUGS (30)
  1. ASTEPRO [Concomitant]
  2. NITROGLYCERIN [Concomitant]
  3. PROVIGIL [Concomitant]
  4. LEVOTHYROXINE SODIUM [Concomitant]
  5. TRAZODONE HCL [Concomitant]
  6. MULTI-VITAMIN [Concomitant]
  7. OMNARIS [Concomitant]
  8. LIDOCAINE PATCHES [Concomitant]
  9. LASIX [Concomitant]
  10. METFORMIN HCL [Concomitant]
  11. ASPIRIN [Concomitant]
  12. LOVAZA [Concomitant]
  13. ELESTAT [Concomitant]
  14. LIPITOR [Concomitant]
  15. NIFEDIPINE [Concomitant]
  16. VITAMIN D [Concomitant]
  17. COMBIVENT [Concomitant]
  18. VOLTAREN [Concomitant]
  19. PROSHIELD PLUS SKIN PROTECTANT (NO PREF. NAME) [Suspect]
     Indication: PROPHYLAXIS
     Dosage: #1 PROSHIELD PLUS SKIN PROTECTANT (NO PREF NAME) ; EVERY 6 WEEKS;TOP ; QD;TOP
     Route: 061
     Dates: start: 20111001, end: 20111107
  20. PROSHIELD PLUS SKIN PROTECTANT (NO PREF. NAME) [Suspect]
     Indication: PROPHYLAXIS
     Dosage: #1 PROSHIELD PLUS SKIN PROTECTANT (NO PREF NAME) ; EVERY 6 WEEKS;TOP ; QD;TOP
     Route: 061
     Dates: start: 20100101, end: 20111001
  21. DETROL LA [Concomitant]
  22. TRAMADOL HCL [Concomitant]
  23. ATENOLOL [Concomitant]
  24. CALCIUM [Concomitant]
  25. CYCLOBENZAPRINE [Concomitant]
  26. MUCINEX [Concomitant]
  27. MIRAPEX [Concomitant]
  28. NYSTATIN [Concomitant]
  29. VITAMIN B COMPLEX CAP [Concomitant]
  30. PROTONIX [Concomitant]

REACTIONS (5)
  - EYELID OEDEMA [None]
  - CHEMICAL BURN OF SKIN [None]
  - OCULAR HYPERAEMIA [None]
  - ERYTHEMA [None]
  - SKIN SWELLING [None]
